FAERS Safety Report 26162983 (Version 1)
Quarter: 2025Q4

REPORT INFORMATION
  Report Type: Spontaneous
  Country: US (occurrence: None)
  Receive Date: 20251215
  Receipt Date: 20251215
  Transmission Date: 20260118
  Serious: No
  Sender: FDA-CTU
  Company Number: None

PATIENT
  Age: 65 Year
  Sex: Male

DRUGS (2)
  1. OFEV [Suspect]
     Active Substance: NINTEDANIB
     Indication: Pulmonary fibrosis
     Dosage: FREQUENCY : TWICE A DAY;
     Route: 048
     Dates: start: 20251016
  2. ATORVASTATIN [Suspect]
     Active Substance: ATORVASTATIN

REACTIONS (2)
  - Aspartate aminotransferase increased [None]
  - Therapy change [None]

NARRATIVE: CASE EVENT DATE: 20251212
